FAERS Safety Report 7273035 (Version 3)
Quarter: 2013Q1

REPORT INFORMATION
  Report Type: Spontaneous
  Country: US (occurrence: US)
  Receive Date: 20100208
  Receipt Date: 20130207
  Transmission Date: 20140127
  Serious: Yes (Other)
  Sender: FDA-Public Use
  Company Number: US-ROCHE-662535

PATIENT
  Age: 17 Year
  Sex: Male
  Weight: 63.5 kg

DRUGS (7)
  1. ACCUTANE [Suspect]
     Indication: ACNE
     Route: 065
     Dates: start: 19960110, end: 19960710
  2. ACCUTANE [Suspect]
     Route: 065
     Dates: start: 19970527, end: 19970627
  3. ACCUTANE [Suspect]
     Route: 065
     Dates: start: 19970927, end: 19971224
  4. ACCUTANE [Suspect]
     Route: 065
     Dates: start: 19991028, end: 19991128
  5. ZITHROMAX Z-PAK [Concomitant]
     Route: 065
  6. ZEPHREX LA [Concomitant]
     Indication: ILL-DEFINED DISORDER
     Dosage: AS REQUIRED
     Route: 065
  7. IMODIUM A-D [Concomitant]

REACTIONS (8)
  - Inflammatory bowel disease [Unknown]
  - Crohn^s disease [Unknown]
  - Colitis ulcerative [Unknown]
  - Intestinal obstruction [Unknown]
  - Suicidal ideation [Unknown]
  - Pharyngitis [Unknown]
  - Ear pain [Unknown]
  - Cough [Unknown]
